FAERS Safety Report 19661975 (Version 1)
Quarter: 2021Q3

REPORT INFORMATION
  Report Type: Spontaneous
  Country: US (occurrence: US)
  Receive Date: 20210805
  Receipt Date: 20210805
  Transmission Date: 20211014
  Serious: No
  Sender: FDA-Public Use
  Company Number: US-PFIZER INC-2019288135

PATIENT
  Age: 50 Year
  Sex: Female

DRUGS (7)
  1. LYRICA [Suspect]
     Active Substance: PREGABALIN
     Indication: DIABETIC NEUROPATHY
     Dosage: 150 MG, 1X/DAY, (EVERY NIGHT AT BEDTIME)
     Route: 048
     Dates: start: 20190627
  2. LYRICA [Suspect]
     Active Substance: PREGABALIN
     Dosage: 75 MG, 2X/DAY [DECREASE THE DOSE TO 1 TAB (75 MG) PO (PER ORAL) BID (TWICE A DAY)]
     Route: 048
  3. LYRICA [Suspect]
     Active Substance: PREGABALIN
     Dosage: 150 MG, 2X/DAY
     Route: 048
  4. LYRICA [Suspect]
     Active Substance: PREGABALIN
     Dosage: 75 MG, 3X/DAY [TAKE 1 TAB (75 MG) PO (PER ORAL) TID (THREE TIMES A DAY) X 7 DAYS]
     Route: 048
  5. LYRICA [Suspect]
     Active Substance: PREGABALIN
     Dosage: 150 MG, 3X/DAY (75 MG CAPSULE/TAKE 2 TAB) THREE TIMES A DAY/ TAKE 2 TAB (150 MG) THREE TIMES A DAY)
     Dates: start: 20201124
  6. LYRICA [Suspect]
     Active Substance: PREGABALIN
     Dosage: 150 MG, 3X/DAY(TAKE 1 CAPSULE (150 MG) BY MOUTH 3 TIMES A DAY)
     Route: 048
     Dates: start: 20200228
  7. LYRICA [Suspect]
     Active Substance: PREGABALIN
     Dosage: 150 MG, 3X/DAY (1 CAPSULE (150 MG) ORALLY 3 TIMES A DAY)
     Route: 048

REACTIONS (2)
  - Mobility decreased [Unknown]
  - Off label use [Unknown]

NARRATIVE: CASE EVENT DATE: 20200228
